FAERS Safety Report 13278817 (Version 1)
Quarter: 2017Q1

REPORT INFORMATION
  Report Type: Spontaneous
  Country: DE (occurrence: DE)
  Receive Date: 20170228
  Receipt Date: 20170228
  Transmission Date: 20170428
  Serious: Yes (Other)
  Sender: FDA-Public Use
  Company Number: GXKR2017DE001311

PATIENT

DRUGS (5)
  1. CITALOPRAM [Suspect]
     Active Substance: CITALOPRAM HYDROBROMIDE
     Indication: DEPRESSION
     Dosage: 20 MG/DAY, DOSE REDUCTION TO 10 MG/DAY FOUR WEEKS BEFORE DELIVERY
     Route: 064
     Dates: start: 20160308, end: 20161201
  2. INSULIN [Concomitant]
     Active Substance: INSULIN NOS
     Indication: TYPE 1 DIABETES MELLITUS
     Dosage: UNKNOWN TRIMESTER
  3. L-THYROXINE [Concomitant]
     Active Substance: LEVOTHYROXINE
     Indication: HYPOTHYROIDISM
     Dosage: 88 [?G/D ]
     Route: 064
     Dates: start: 20160308, end: 20161201
  4. FOLSAEURE [Concomitant]
     Active Substance: FOLIC ACID
     Indication: PROPHYLAXIS OF NEURAL TUBE DEFECT
     Dosage: UNK UKN, UNK
     Route: 064
  5. PARACETAMOL [Concomitant]
     Active Substance: ACETAMINOPHEN
     Indication: PAIN
     Dosage: ON DEMAND, UNKNOWN TRIMESTER
     Route: 064

REACTIONS (7)
  - Hypoglycaemia neonatal [Recovered/Resolved]
  - Respiratory disorder neonatal [Recovered/Resolved]
  - Agitation neonatal [Recovered/Resolved]
  - Congenital choroid plexus cyst [Unknown]
  - Hypertonia neonatal [Recovered/Resolved]
  - Tremor neonatal [Recovered/Resolved]
  - Large for dates baby [Recovering/Resolving]

NARRATIVE: CASE EVENT DATE: 20161201
